FAERS Safety Report 19452070 (Version 1)
Quarter: 2021Q2

REPORT INFORMATION
  Report Type: Spontaneous
  Country: FR (occurrence: FR)
  Receive Date: 20210623
  Receipt Date: 20210623
  Transmission Date: 20210717
  Serious: Yes (Hospitalization)
  Sender: FDA-Public Use
  Company Number: FR-NOVOPROD-821931

PATIENT
  Age: 54 Year
  Sex: Male
  Weight: 125 kg

DRUGS (1)
  1. SAXENDA [Suspect]
     Active Substance: LIRAGLUTIDE
     Indication: OBESITY
     Dosage: 0.6 MG(HAD IN TOTAL 3 INJECTIONS)
     Route: 065
     Dates: start: 202106, end: 202106

REACTIONS (5)
  - Intestinal obstruction [Recovered/Resolved]
  - Defaecation urgency [Recovered/Resolved]
  - Nausea [Recovered/Resolved]
  - Abdominal pain [Recovered/Resolved]
  - Pubic pain [Recovered/Resolved]

NARRATIVE: CASE EVENT DATE: 202106
